FAERS Safety Report 22604411 (Version 1)
Quarter: 2023Q2

REPORT INFORMATION
  Report Type: Spontaneous
  Country: US (occurrence: None)
  Receive Date: 20230614
  Receipt Date: 20230614
  Transmission Date: 20230721
  Serious: Yes (Death)
  Sender: FDA-Public Use
  Company Number: None

PATIENT
  Age: 60 Year
  Sex: Male

DRUGS (4)
  1. IRESSA [Suspect]
     Active Substance: GEFITINIB
     Dates: start: 20230208
  2. KEYTRUDA [Suspect]
     Active Substance: PEMBROLIZUMAB
     Dates: start: 20221201
  3. IRESSA [Concomitant]
     Active Substance: GEFITINIB
     Dates: start: 20230208
  4. Keutruda [Concomitant]
     Dates: start: 20221201

REACTIONS (1)
  - Death [None]

NARRATIVE: CASE EVENT DATE: 20230527
